FAERS Safety Report 9289994 (Version 1)
Quarter: 2013Q2

REPORT INFORMATION
  Report Type: Spontaneous
  Country: US (occurrence: US)
  Receive Date: 20130515
  Receipt Date: 20130515
  Transmission Date: 20140414
  Serious: Yes (Other)
  Sender: FDA-Public Use
  Company Number: US-ACCORD-017588

PATIENT
  Age: 25 Year
  Sex: Male

DRUGS (2)
  1. TOPIRAMATE [Suspect]
     Indication: OBSESSIVE-COMPULSIVE DISORDER
     Dosage: DRUG STARTED WITH 50 MG/DAY AND INCREASED TO 100 MG/DAY
  2. ESCITALOPRAM [Suspect]
     Indication: OBSESSIVE-COMPULSIVE DISORDER

REACTIONS (3)
  - Sedation [Unknown]
  - Apathy [Unknown]
  - Off label use [Unknown]
